FAERS Safety Report 17612456 (Version 13)
Quarter: 2020Q4

REPORT INFORMATION
  Report Type: Spontaneous
  Country: US (occurrence: US)
  Receive Date: 20200401
  Receipt Date: 20201120
  Transmission Date: 20210113
  Serious: Yes (Hospitalization, Other)
  Sender: FDA-Public Use
  Company Number: US-GLAXOSMITHKLINE-US2020AMR053943

PATIENT
  Age: 83 Year
  Sex: Female

DRUGS (7)
  1. ZEJULA [Suspect]
     Active Substance: NIRAPARIB
     Indication: OVARIAN CANCER
     Dosage: 200 MG, QD
     Dates: start: 202002
  2. ZEJULA [Suspect]
     Active Substance: NIRAPARIB
     Dosage: 100 MG,DAILY
     Dates: start: 20200304
  3. ZEJULA [Suspect]
     Active Substance: NIRAPARIB
     Dosage: 100 MG, QD, PM WITH FOOD
     Dates: start: 20200731, end: 20201113
  4. ZEJULA [Suspect]
     Active Substance: NIRAPARIB
     Dosage: 100 MG, QD
  5. ZEJULA [Suspect]
     Active Substance: NIRAPARIB
     Dosage: 100 MG, QD
     Route: 065
     Dates: start: 20200220
  6. ZEJULA [Suspect]
     Active Substance: NIRAPARIB
     Dosage: 100 MG, QD
  7. ZEJULA [Suspect]
     Active Substance: NIRAPARIB
     Dosage: 100 MG, QD

REACTIONS (21)
  - Transfusion [Unknown]
  - Blood iron decreased [Unknown]
  - Ascites [Unknown]
  - Decreased appetite [Unknown]
  - Heart rate increased [Recovering/Resolving]
  - Abdominal lymphadenopathy [Unknown]
  - Eating disorder [Recovering/Resolving]
  - Pruritus [Unknown]
  - Urticaria [Unknown]
  - Off label use [Unknown]
  - Constipation [Unknown]
  - Asthenia [Not Recovered/Not Resolved]
  - Weight decreased [Not Recovered/Not Resolved]
  - Disease progression [Unknown]
  - Vomiting [Unknown]
  - Haemoglobin decreased [Unknown]
  - Fatigue [Not Recovered/Not Resolved]
  - Diarrhoea [Unknown]
  - Weight increased [Unknown]
  - Tachycardia [Unknown]
  - Product dose omission issue [Unknown]

NARRATIVE: CASE EVENT DATE: 20200331
